FAERS Safety Report 18877163 (Version 1)
Quarter: 2021Q1

REPORT INFORMATION
  Report Type: Report from Study
  Country: None (occurrence: CA)
  Receive Date: 20210210
  Receipt Date: 20210210
  Transmission Date: 20210420
  Serious: Yes (Hospitalization)
  Sender: FDA-Public Use
  Company Number: CA-ABBVIE-21K-028-3761777-00

PATIENT
  Age: 38 Year
  Sex: Female

DRUGS (1)
  1. SKYRIZI [Suspect]
     Active Substance: RISANKIZUMAB-RZAA
     Indication: PSORIASIS
     Route: 058
     Dates: start: 20210106

REACTIONS (7)
  - Pallor [Recovered/Resolved]
  - Stress [Unknown]
  - Generalised tonic-clonic seizure [Not Recovered/Not Resolved]
  - Syncope [Recovered/Resolved]
  - Fear of injection [Unknown]
  - Hospitalisation [Unknown]
  - Postictal state [Unknown]

NARRATIVE: CASE EVENT DATE: 2021
